FAERS Safety Report 25169404 (Version 2)
Quarter: 2025Q2

REPORT INFORMATION
  Report Type: Spontaneous
  Country: US (occurrence: US)
  Receive Date: 20250407
  Receipt Date: 20250417
  Transmission Date: 20250717
  Serious: Yes (Life-Threatening, Hospitalization)
  Sender: TEVA
  Company Number: US-TEVA-VS-3317180

PATIENT
  Age: 36 Year
  Sex: Female

DRUGS (19)
  1. CLOMIPRAMINE [Interacting]
     Active Substance: CLOMIPRAMINE
     Indication: Major depression
     Route: 065
  2. LORAZEPAM [Suspect]
     Active Substance: LORAZEPAM
     Indication: Status epilepticus
     Route: 042
  3. LEVETIRACETAM [Suspect]
     Active Substance: LEVETIRACETAM
     Indication: Status epilepticus
     Route: 042
  4. LITHIUM [Concomitant]
     Active Substance: LITHIUM
     Indication: Suicidal ideation
     Route: 065
  5. LIDOCAINE HYDROCHLORIDE [Interacting]
     Active Substance: LIDOCAINE HYDROCHLORIDE
     Indication: Induction of anaesthesia
     Route: 042
  6. DIAZEPAM [Suspect]
     Active Substance: DIAZEPAM
     Indication: Status epilepticus
     Route: 042
  7. LACOSAMIDE [Concomitant]
     Active Substance: LACOSAMIDE
     Indication: Seizure prophylaxis
     Route: 065
  8. METHOHEXITAL [Concomitant]
     Active Substance: METHOHEXITAL
     Indication: Induction of anaesthesia
     Route: 042
  9. SUCCINYLCHOLINE [Concomitant]
     Active Substance: SUCCINYLCHOLINE
     Indication: Induction of anaesthesia
     Route: 042
  10. KETAMINE [Suspect]
     Active Substance: KETAMINE
     Indication: Major depression
     Route: 042
  11. KETAMINE [Suspect]
     Active Substance: KETAMINE
     Indication: Major depression
     Route: 030
  12. GABAPENTIN [Concomitant]
     Active Substance: GABAPENTIN
     Indication: Major depression
     Route: 065
  13. ATOMOXETINE [Suspect]
     Active Substance: ATOMOXETINE
     Indication: Major depression
     Route: 065
  14. MIDAZOLAM [Suspect]
     Active Substance: MIDAZOLAM
     Indication: Status epilepticus
     Route: 042
  15. MIDAZOLAM [Suspect]
     Active Substance: MIDAZOLAM
     Indication: Status epilepticus
     Route: 041
  16. MIDAZOLAM [Suspect]
     Active Substance: MIDAZOLAM
     Indication: Status epilepticus
     Route: 042
  17. PROPOFOL [Suspect]
     Active Substance: PROPOFOL
     Indication: Status epilepticus
     Route: 041
  18. PROPOFOL [Suspect]
     Active Substance: PROPOFOL
     Indication: Status epilepticus
     Route: 042
  19. PROPOFOL [Suspect]
     Active Substance: PROPOFOL
     Indication: Status epilepticus
     Route: 042

REACTIONS (3)
  - Status epilepticus [Recovered/Resolved]
  - Drug ineffective [Unknown]
  - Drug interaction [Unknown]
